FAERS Safety Report 21837756 (Version 1)
Quarter: 2023Q1

REPORT INFORMATION
  Report Type: Report from Study
  Country: US (occurrence: US)
  Receive Date: 20230109
  Receipt Date: 20230109
  Transmission Date: 20230418
  Serious: No
  Sender: FDA-Public Use
  Company Number: US-ABBVIE-4216635

PATIENT
  Age: 40 Year
  Sex: Male

DRUGS (3)
  1. SKYRIZI [Suspect]
     Active Substance: RISANKIZUMAB-RZAA
     Indication: Psoriasis
     Route: 058
     Dates: start: 20220902
  2. SKYRIZI [Suspect]
     Active Substance: RISANKIZUMAB-RZAA
     Dosage: WEEK 4
     Route: 058
     Dates: start: 20220610, end: 20220610
  3. SKYRIZI [Suspect]
     Active Substance: RISANKIZUMAB-RZAA
     Dosage: WEEK 0, STARTED ON 09 MAY 2022 OR 16 MAY 2022
     Route: 058
     Dates: start: 202205, end: 202205

REACTIONS (2)
  - Pruritus [Not Recovered/Not Resolved]
  - Enzyme abnormality [Unknown]

NARRATIVE: CASE EVENT DATE: 20221001
